FAERS Safety Report 25372415 (Version 2)
Quarter: 2025Q3

REPORT INFORMATION
  Report Type: Report from Study
  Country: CO (occurrence: CO)
  Receive Date: 20250529
  Receipt Date: 20250723
  Transmission Date: 20251020
  Serious: Yes (Life-Threatening, Hospitalization, Other)
  Sender: ABBVIE
  Company Number: CO-JNJFOC-20250524618

PATIENT
  Age: 74 Year
  Sex: Female
  Weight: 76 kg

DRUGS (1)
  1. IMBRUVICA [Suspect]
     Active Substance: IBRUTINIB
     Indication: Chronic lymphocytic leukaemia
     Route: 048
     Dates: start: 20250220, end: 20250707

REACTIONS (9)
  - Suicidal ideation [Unknown]
  - Illness [Unknown]
  - Metastasis [Unknown]
  - Communication disorder [Unknown]
  - Syncope [Unknown]
  - Mass [Unknown]
  - Eating disorder [Unknown]
  - Pain [Unknown]
  - Groin pain [Unknown]

NARRATIVE: CASE EVENT DATE: 20250513
